FAERS Safety Report 11950031 (Version 1)
Quarter: 2016Q1

REPORT INFORMATION
  Report Type: Spontaneous
  Country: FR (occurrence: FR)
  Receive Date: 20160125
  Receipt Date: 20160125
  Transmission Date: 20160526
  Serious: Yes (Hospitalization)
  Sender: FDA-Public Use
  Company Number: PHHY2016FR007985

PATIENT
  Age: 19 Year
  Sex: Female

DRUGS (9)
  1. FORLAX [Suspect]
     Active Substance: POLYETHYLENE GLYCOL 4000
     Indication: THROMBOCYTOPENIA
     Dosage: UNK (2 SACHETS A DAY)
     Route: 048
     Dates: start: 20140710
  2. BACLOFEN. [Suspect]
     Active Substance: BACLOFEN
     Indication: PRODUCT USED FOR UNKNOWN INDICATION
     Dosage: 10 MG, TID
     Route: 048
     Dates: start: 20140724
  3. DEROXAT [Suspect]
     Active Substance: PAROXETINE HYDROCHLORIDE
     Indication: THROMBOCYTOPENIA
     Dosage: 20 MG, QD
     Route: 048
     Dates: start: 20140617
  4. GUTRON [Suspect]
     Active Substance: MIDODRINE
     Indication: THROMBOCYTOPENIA
     Dosage: 4 DF, QID
     Route: 048
     Dates: start: 20140710
  5. XANAX [Suspect]
     Active Substance: ALPRAZOLAM
     Indication: THROMBOCYTOPENIA
     Dosage: 25 MG, QD
     Route: 048
     Dates: start: 20140816
  6. IMOVANE [Suspect]
     Active Substance: ZOPICLONE
     Indication: THROMBOCYTOPENIA
     Dosage: 1 DF, QD
     Route: 048
     Dates: start: 20140710
  7. LYRICA [Suspect]
     Active Substance: PREGABALIN
     Indication: THROMBOCYTOPENIA
     Dosage: 250 MG, QD
     Route: 048
     Dates: start: 20140710, end: 20141011
  8. PARACETAMOL [Suspect]
     Active Substance: ACETAMINOPHEN
     Indication: THROMBOCYTOPENIA
     Dosage: UNK
     Route: 048
     Dates: start: 20140710
  9. DOMPERIDONE [Suspect]
     Active Substance: DOMPERIDONE
     Indication: THROMBOCYTOPENIA
     Dosage: 10 MG, QD
     Route: 048
     Dates: start: 20140715

REACTIONS (1)
  - Thrombocytopenia [Recovering/Resolving]

NARRATIVE: CASE EVENT DATE: 20141008
